FAERS Safety Report 7412647-9 (Version None)
Quarter: 2011Q2

REPORT INFORMATION
  Report Type: 
  Country: None (occurrence: None)
  Receive Date: 20110413
  Receipt Date: 20110408
  Transmission Date: 20111010
  Serious: No
  Sender: FDA-Public Use
  Company Number: US-PFIZER INC-2011078335

PATIENT
  Sex: Female
  Weight: 79.365 kg

DRUGS (2)
  1. PRISTIQ [Suspect]
     Indication: DEPRESSION
  2. PRISTIQ [Suspect]
     Indication: ANXIETY
     Dosage: 50 MG, 1X/DAY
     Route: 048
     Dates: start: 20100401

REACTIONS (5)
  - CONTUSION [None]
  - HYPERHIDROSIS [None]
  - HEADACHE [None]
  - NAUSEA [None]
  - DIZZINESS [None]
